FAERS Safety Report 11445658 (Version 1)
Quarter: 2015Q3

REPORT INFORMATION
  Report Type: Spontaneous
  Country: US (occurrence: None)
  Receive Date: 20150901
  Receipt Date: 20150901
  Transmission Date: 20151125
  Serious: Yes (Hospitalization)
  Sender: FDA-Public Use
  Company Number: None

PATIENT
  Age: 65 Year
  Sex: Male
  Weight: 88.45 kg

DRUGS (18)
  1. TADALAFIL [Concomitant]
     Active Substance: TADALAFIL
  2. METOPROLOL TARTRATE. [Concomitant]
     Active Substance: METOPROLOL TARTRATE
  3. DOXYCYCLINE MONOHYDRATE [Concomitant]
     Active Substance: DOXYCYCLINE
  4. ONDANSETRON [Concomitant]
     Active Substance: ONDANSETRON
  5. MIRTAZAPINE. [Concomitant]
     Active Substance: MIRTAZAPINE
  6. SERTRALINE [Concomitant]
     Active Substance: SERTRALINE HYDROCHLORIDE
  7. ASPIRIN. [Concomitant]
     Active Substance: ASPIRIN
  8. ADCIRCA [Suspect]
     Active Substance: TADALAFIL
     Indication: LUNG DISORDER
     Route: 048
     Dates: start: 20150109, end: 20150831
  9. PLACEBO [Concomitant]
     Active Substance: UNSPECIFIED INGREDIENT
  10. TIOTROPIUM [Concomitant]
     Active Substance: TIOTROPIUM
  11. ALBUTEROL. [Concomitant]
     Active Substance: ALBUTEROL
  12. POVIDONE [Concomitant]
     Active Substance: POVIDONE
  13. ASPIRIN 25MG/DIPYRIDAMOLE 200MG [Concomitant]
  14. DENTL CREAM [Concomitant]
  15. BUDESONIDE. [Concomitant]
     Active Substance: BUDESONIDE
  16. ARTIFICIAL TEARS PVA 1.4%/POVIDONE [Concomitant]
  17. SODIUM FLUORIDE. [Concomitant]
     Active Substance: SODIUM FLUORIDE
  18. LISINOPRIL. [Concomitant]
     Active Substance: LISINOPRIL

REACTIONS (9)
  - Erythema [None]
  - Wound secretion [None]
  - Skin lesion [None]
  - Skin warm [None]
  - Cellulitis [None]
  - Nausea [None]
  - Acne [None]
  - Respiratory disorder [None]
  - Vomiting [None]

NARRATIVE: CASE EVENT DATE: 20150826
